FAERS Safety Report 9041105 (Version 1)
Quarter: 2013Q1

REPORT INFORMATION
  Report Type: Spontaneous
  Country: US (occurrence: None)
  Receive Date: 20130114
  Receipt Date: 20130114
  Transmission Date: 20140127
  Serious: Yes (Death)
  Sender: FDA-Public Use
  Company Number: CIO12026407

PATIENT
  Sex: Male

DRUGS (1)
  1. PEPTO-BISMOL [Suspect]
     Route: 048

REACTIONS (1)
  - Death [None]
